FAERS Safety Report 8197455 (Version 7)
Quarter: 2014Q2

REPORT INFORMATION
  Report Type: Report from Study
  Country: UG (occurrence: UG)
  Receive Date: 20111024
  Receipt Date: 20140613
  Transmission Date: 20141212
  Serious: Yes (Death, Hospitalization, Congenital Anomaly, Other)
  Sender: FDA-Public Use
  Company Number: US-GILEAD-2011-0035224

PATIENT
  Age: 1 Day
  Sex: Female

DRUGS (8)
  1. EMTRICITABINE/TENOFOVIR DISOPROXIL FUMARATE [Suspect]
     Indication: PROPHYLAXIS AGAINST HIV INFECTION
     Dosage: 1 DF, QD
     Route: 064
     Dates: start: 20100213, end: 20101113
  2. PARACETAMOL [Concomitant]
     Dosage: UNK
     Dates: start: 20100213, end: 20101113
  3. VITAMIN B COMPLEX [Concomitant]
     Dosage: UNK
     Route: 064
     Dates: start: 20100630, end: 20100706
  4. IBUPROFEN [Concomitant]
     Dosage: UNK
     Route: 064
     Dates: start: 20100630, end: 20100706
  5. SULFAMETHOXAZOLE W/TRIMETHOPRIM [Concomitant]
     Dosage: UNK
     Route: 064
     Dates: start: 20100825, end: 20100830
  6. ARTEMETHER W/LUMEFANTRINE [Concomitant]
     Dosage: UNK
     Route: 064
     Dates: start: 20100921, end: 20100924
  7. COTRIMOXAZOLE [Concomitant]
     Dosage: UNK
     Route: 064
     Dates: start: 20101029, end: 20101104
  8. METRONIDAZOLE [Concomitant]
     Dosage: UNK
     Route: 064
     Dates: start: 20101029, end: 20101103

REACTIONS (3)
  - Exomphalos [Fatal]
  - Ventricular septal defect [Fatal]
  - Cardiac murmur [Fatal]
